FAERS Safety Report 9647530 (Version 1)
Quarter: 2013Q4

REPORT INFORMATION
  Report Type: Spontaneous
  Country: US (occurrence: None)
  Receive Date: 20131024
  Receipt Date: 20131024
  Transmission Date: 20140711
  Serious: Yes (Other)
  Sender: FDA-Public Use
  Company Number: None

PATIENT
  Age: 63 Year
  Sex: Female
  Weight: 58.97 kg

DRUGS (1)
  1. TECFIDERA 125 MG, 2X DAILY, THEN 250 MG., ACCREDO [Suspect]
     Indication: MULTIPLE SCLEROSIS
     Dosage: 2 PILLS/125 MG, 1 PILL/250 MG  TWICE DAILY  TAKEN BY MOUTH
     Route: 048
     Dates: start: 20130603, end: 20130620

REACTIONS (3)
  - Paraesthesia [None]
  - Erythema [None]
  - Burning sensation [None]
